FAERS Safety Report 6885313-6 (Version None)
Quarter: 2010Q3

REPORT INFORMATION
  Report Type: 
  Country: None (occurrence: None)
  Receive Date: 20100729
  Receipt Date: 20100729
  Transmission Date: 20110219
  Serious: No
  Sender: FDA-Public Use
  Company Number: None

PATIENT
  Age: 29 Year
  Sex: Female
  Weight: 54.4316 kg

DRUGS (1)
  1. BUDEPRION XL 150MG ACTAVIS/KROGER [Suspect]
     Indication: MAJOR DEPRESSION
     Dosage: 150MG EVERY AM PO
     Route: 048
     Dates: start: 20100713, end: 20100719

REACTIONS (2)
  - ARTHRALGIA [None]
  - PRODUCT SUBSTITUTION ISSUE [None]
